FAERS Safety Report 4380233-3 (Version None)
Quarter: 2004Q2

REPORT INFORMATION
  Report Type: 
  Country: None (occurrence: None)
  Receive Date: 20040616
  Receipt Date: 20040616
  Transmission Date: 20050107
  Serious: Yes (Hospitalization)
  Sender: FDA-Public Use
  Company Number: None

PATIENT
  Sex: Male

DRUGS (2)
  1. PEG-INTERFERON ALFA 2B [Suspect]
     Indication: HEPATITIS C
     Dosage: 150 MCG SC WEEKLY X -16WKS
     Route: 058
  2. RIBAVIRIN [Suspect]
     Indication: HEPATITIS C
     Dosage: 600 MG PO BID X -16 WKS
     Route: 048

REACTIONS (1)
  - DEEP VEIN THROMBOSIS [None]
